FAERS Safety Report 19306006 (Version 2)
Quarter: 2021Q3

REPORT INFORMATION
  Report Type: Spontaneous
  Country: US (occurrence: US)
  Receive Date: 20210526
  Receipt Date: 20210702
  Transmission Date: 20211014
  Serious: Yes (Death)
  Sender: FDA-Public Use
  Company Number: US-NOVOPROD-813844

PATIENT
  Sex: Male

DRUGS (1)
  1. NOVOLOG [Suspect]
     Active Substance: INSULIN ASPART
     Indication: DIABETES MELLITUS
     Dosage: USING UP 9 BOLUSES IN 24 HOUR PERIOD PRIOR TO PASSING AWAY
     Route: 058

REACTIONS (1)
  - Diabetic ketoacidosis [Fatal]
